FAERS Safety Report 9709956 (Version 2)
Quarter: 2013Q4

REPORT INFORMATION
  Report Type: Spontaneous
  Country: FR (occurrence: FR)
  Receive Date: 20131126
  Receipt Date: 20131217
  Transmission Date: 20140711
  Serious: Yes (Hospitalization, Other)
  Sender: FDA-Public Use
  Company Number: FR-JNJFOC-20131112129

PATIENT
  Age: 85 Year
  Sex: Female
  Weight: 68 kg

DRUGS (6)
  1. XARELTO [Suspect]
     Indication: CEREBROVASCULAR ACCIDENT PROPHYLAXIS
     Route: 065
     Dates: start: 201301, end: 201304
  2. XARELTO [Suspect]
     Indication: VENOUS THROMBOSIS
     Route: 065
     Dates: start: 201301, end: 201304
  3. XARELTO [Suspect]
     Indication: TRANSIENT ISCHAEMIC ATTACK
     Route: 065
     Dates: start: 201301, end: 201304
  4. XARELTO [Suspect]
     Indication: ATRIAL FIBRILLATION
     Route: 065
     Dates: start: 201301, end: 201304
  5. TEMERIT [Concomitant]
     Indication: HYPERTENSION
     Route: 065
     Dates: start: 2006
  6. EXELON [Concomitant]
     Indication: DEMENTIA ALZHEIMER^S TYPE
     Route: 065
     Dates: start: 2006

REACTIONS (3)
  - Acute coronary syndrome [Unknown]
  - Pulmonary oedema [Unknown]
  - Drug ineffective [Unknown]
